FAERS Safety Report 21121541 (Version 3)
Quarter: 2022Q4

REPORT INFORMATION
  Report Type: Spontaneous
  Country: US (occurrence: US)
  Receive Date: 20220722
  Receipt Date: 20221013
  Transmission Date: 20230113
  Serious: Yes (Hospitalization, Other)
  Sender: FDA-Public Use
  Company Number: US-BRISTOL-MYERS SQUIBB COMPANY-2022-078419

PATIENT
  Age: 89 Year
  Sex: Male

DRUGS (3)
  1. REVLIMID [Suspect]
     Active Substance: LENALIDOMIDE
     Indication: Plasma cell myeloma
     Route: 065
  2. REVLIMID [Suspect]
     Active Substance: LENALIDOMIDE
     Route: 048
     Dates: start: 202205
  3. REVLIMID [Suspect]
     Active Substance: LENALIDOMIDE
     Dosage: OTHER
     Route: 048
     Dates: start: 202205

REACTIONS (5)
  - Product dose omission issue [Unknown]
  - Pneumonia [Recovered/Resolved]
  - Cough [Unknown]
  - Chest discomfort [Unknown]
  - Off label use [Unknown]

NARRATIVE: CASE EVENT DATE: 20220601
